FAERS Safety Report 15193399 (Version 2)
Quarter: 2018Q3

REPORT INFORMATION
  Report Type: Spontaneous
  Country: US (occurrence: US)
  Receive Date: 20180725
  Receipt Date: 20180806
  Transmission Date: 20181010
  Serious: No
  Sender: FDA-Public Use
  Company Number: US-BEH-2018092999

PATIENT
  Age: 74 Year
  Sex: Female

DRUGS (1)
  1. HIZENTRA [Suspect]
     Active Substance: HUMAN IMMUNOGLOBULIN G
     Indication: SELECTIVE IGG SUBCLASS DEFICIENCY
     Dosage: 8 G, QW (EVERY 7 DAYS)
     Route: 058
     Dates: start: 20170808

REACTIONS (5)
  - Arthralgia [Unknown]
  - Grief reaction [Unknown]
  - Arthropod bite [Unknown]
  - Decreased appetite [Unknown]
  - Infected bite [Unknown]

NARRATIVE: CASE EVENT DATE: 201711
